FAERS Safety Report 6357540-8 (Version None)
Quarter: 2009Q3

REPORT INFORMATION
  Report Type: 
  Country: None (occurrence: None)
  Receive Date: 20090916
  Receipt Date: 20090908
  Transmission Date: 20100115
  Serious: Yes (Other)
  Sender: FDA-Public Use
  Company Number: US-AVENTIS-200918041US

PATIENT
  Sex: Female

DRUGS (2)
  1. LOVENOX [Suspect]
     Dates: start: 20090101
  2. LOVENOX [Suspect]
     Dates: start: 20090101

REACTIONS (2)
  - INJECTION SITE HAEMATOMA [None]
  - WEIGHT DECREASED [None]
